FAERS Safety Report 15179825 (Version 2)
Quarter: 2018Q4

REPORT INFORMATION
  Report Type: Report from Study
  Country: GB (occurrence: GB)
  Receive Date: 20180723
  Receipt Date: 20181221
  Transmission Date: 20190204
  Serious: Yes (Life-Threatening, Hospitalization, Other)
  Sender: FDA-Public Use
  Company Number: GB-ACCORD-069685

PATIENT
  Sex: Female

DRUGS (2)
  1. RAMIPRIL. [Suspect]
     Active Substance: RAMIPRIL
     Indication: PRODUCT USED FOR UNKNOWN INDICATION
     Route: 065
  2. TOCILIZUMAB. [Suspect]
     Active Substance: TOCILIZUMAB
     Indication: RHEUMATOID ARTHRITIS
     Route: 058
     Dates: start: 20170313

REACTIONS (15)
  - Pruritus [Unknown]
  - Feeling abnormal [Unknown]
  - Cough [Unknown]
  - Heart rate increased [Unknown]
  - Rales [Unknown]
  - Back pain [Unknown]
  - Blood pressure increased [Unknown]
  - Headache [Unknown]
  - Malaise [Unknown]
  - Rash [Unknown]
  - Chest discomfort [Unknown]
  - Pyrexia [Unknown]
  - Hair disorder [Unknown]
  - Dyspnoea [Unknown]
  - Blood potassium decreased [Unknown]
